FAERS Safety Report 4429326-2 (Version None)
Quarter: 2004Q3

REPORT INFORMATION
  Report Type: 
  Country: None (occurrence: None)
  Receive Date: 20040816
  Receipt Date: 20040730
  Transmission Date: 20050211
  Serious: Yes (Hospitalization)
  Sender: FDA-Public Use
  Company Number: 198482

PATIENT
  Age: 48 Year
  Sex: Female

DRUGS (3)
  1. AVONEX [Suspect]
     Indication: MULTIPLE SCLEROSIS
     Dosage: 30 MCG QW IM
     Route: 030
     Dates: start: 20040116
  2. AVONEX [Suspect]
     Indication: MULTIPLE SCLEROSIS
     Dosage: 30 MCG QW IM
     Route: 030
  3. NEURONTIN [Concomitant]

REACTIONS (20)
  - ABASIA [None]
  - ANXIETY [None]
  - ARTHRALGIA [None]
  - ASTHENIA [None]
  - CARDIAC ARREST [None]
  - CHILLS [None]
  - COGNITIVE DISORDER [None]
  - CONVULSION [None]
  - DIABETES MELLITUS [None]
  - DIAPHRAGMATIC DISORDER [None]
  - DYSPNOEA [None]
  - FALL [None]
  - GRAND MAL CONVULSION [None]
  - HYPERTENSION [None]
  - MULTIPLE SCLEROSIS [None]
  - MYALGIA [None]
  - PYREXIA [None]
  - SOMATIC DELUSION [None]
  - VAGINAL HAEMORRHAGE [None]
  - WEIGHT INCREASED [None]
